FAERS Safety Report 5046916-7 (Version None)
Quarter: 2006Q2

REPORT INFORMATION
  Report Type: 
  Country: None (occurrence: None)
  Receive Date: 20060629
  Receipt Date: 20060620
  Transmission Date: 20061013
  Serious: Yes (Other)
  Sender: FDA-Public Use
  Company Number: HQWYE410219MAY06

PATIENT
  Age: 33 Year
  Sex: Female

DRUGS (2)
  1. PREMARIN [Suspect]
     Indication: HORMONE REPLACEMENT THERAPY
     Dosage: 0.3 MG DAILY
     Route: 048
     Dates: start: 20060201, end: 20060201
  2. PREMARIN [Suspect]
     Indication: HORMONE REPLACEMENT THERAPY
     Dosage: 0.3 MG DAILY
     Route: 048
     Dates: start: 20060601

REACTIONS (5)
  - DYSPNOEA [None]
  - PARAESTHESIA ORAL [None]
  - PARALYSIS [None]
  - THROMBOSIS [None]
  - WEIGHT INCREASED [None]
